FAERS Safety Report 5944172-6 (Version None)
Quarter: 2008Q4

REPORT INFORMATION
  Report Type: 
  Country: None (occurrence: None)
  Receive Date: 20081104
  Receipt Date: 20081021
  Transmission Date: 20090506
  Serious: Yes (Death, Hospitalization)
  Sender: FDA-Public Use
  Company Number: A-NJ2008-22283

PATIENT
  Age: 61 Year
  Sex: Female

DRUGS (1)
  1. VENTAVIS [Suspect]
     Indication: PULMONARY HYPERTENSION
     Dosage: UNK, UNK, RESPIRATORY
     Route: 055
     Dates: start: 20051005

REACTIONS (1)
  - DEATH [None]
